FAERS Safety Report 20510601 (Version 1)
Quarter: 2022Q1

REPORT INFORMATION
  Report Type: Spontaneous
  Country: US (occurrence: US)
  Receive Date: 20220224
  Receipt Date: 20220224
  Transmission Date: 20220423
  Serious: Yes (Other)
  Sender: FDA-Public Use
  Company Number: US-NOVARTISPH-NVSC2022US041259

PATIENT
  Age: 9 Year
  Sex: Male

DRUGS (1)
  1. KYMRIAH [Suspect]
     Active Substance: TISAGENLECLEUCEL
     Indication: Acute lymphocytic leukaemia
     Dosage: 1.6 UG, ONCE/SINGLE (1.6 UG (1.6 E8 CAR-POSITIVE VIABLE T CELLS))
     Route: 042
     Dates: start: 20220214

REACTIONS (3)
  - Blast cell count increased [Recovering/Resolving]
  - Serum ferritin increased [Recovering/Resolving]
  - Pyrexia [Recovering/Resolving]

NARRATIVE: CASE EVENT DATE: 20220216
